FAERS Safety Report 6386047-7 (Version None)
Quarter: 2009Q3

REPORT INFORMATION
  Report Type: 
  Country: None (occurrence: None)
  Receive Date: 20090929
  Receipt Date: 20081010
  Transmission Date: 20100115
  Serious: Yes (Other)
  Sender: FDA-Public Use
  Company Number: 14335640

PATIENT
  Age: 49 Year
  Sex: Male

DRUGS (11)
  1. DEFINITY [Suspect]
     Indication: CARDIAC STRESS TEST
     Dosage: 1 DF = 1.3ML DILUTED IN 9ML 0.9NS. (1 DOSAGE FORMS), INTRAVENOUS
     Route: 042
     Dates: start: 20080911
  2. LIPITOR [Concomitant]
  3. CATAPRES [Concomitant]
  4. VASOTEC [Concomitant]
  5. LASIX [Concomitant]
  6. LOPRESSOR [Concomitant]
  7. K-DUR [Concomitant]
  8. ALDACTONE [Concomitant]
  9. XANAX [Concomitant]
  10. AMIODARONE [Concomitant]
  11. AMOXICILLIN AND CLAVULANATE POTASSIUM [Concomitant]

REACTIONS (3)
  - CHEST DISCOMFORT [None]
  - DYSPNOEA [None]
  - WHEEZING [None]
